FAERS Safety Report 8865671 (Version 1)
Quarter: 2012Q4

REPORT INFORMATION
  Report Type: 
  Country: US (occurrence: US)
  Receive Date: 20121024
  Receipt Date: 20121024
  Transmission Date: 20130627
  Serious: No
  Sender: FDA-Public Use
  Company Number: US-AMGEN-USASP2012004324

PATIENT
  Age: 61 Year
  Sex: Female
  Weight: 73.02 kg

DRUGS (6)
  1. ENBREL [Suspect]
     Indication: PRODUCT USED FOR UNKNOWN INDICATION
     Dosage: 25 mg, 2 times/wk
     Route: 058
  2. OMEPRAZOLE [Concomitant]
     Dosage: 10 mg, UNK
  3. INDERAL [Concomitant]
     Dosage: 10 mg, UNK
  4. LOTREL [Concomitant]
  5. CALCIUM +D                         /00188401/ [Concomitant]
  6. PREMPRO [Concomitant]

REACTIONS (2)
  - Injection site pain [Unknown]
  - Injection site erythema [Unknown]
